FAERS Safety Report 5627304-9 (Version None)
Quarter: 2008Q1

REPORT INFORMATION
  Report Type: 
  Country: None (occurrence: None)
  Receive Date: 20080215
  Receipt Date: 20080208
  Transmission Date: 20080703
  Serious: Yes (Other)
  Sender: FDA-Public Use
  Company Number: US-JNJFOC-20080202605

PATIENT
  Age: 75 Year
  Sex: Female
  Weight: 79.38 kg

DRUGS (10)
  1. TYLENOL (CAPLET) [Suspect]
     Route: 048
  2. TYLENOL (CAPLET) [Suspect]
     Indication: ARTHRITIS
     Route: 048
  3. CORTIZONE HOT AND ICY [Concomitant]
  4. PLAVIX [Concomitant]
     Indication: CORONARY ARTERIAL STENT INSERTION
  5. XANAX [Concomitant]
     Indication: HYPERTENSION
  6. XANAX [Concomitant]
     Indication: ANXIETY
  7. CLONIDINE [Concomitant]
     Indication: BLOOD PRESSURE
  8. TOPROL [Concomitant]
     Indication: BLOOD PRESSURE
  9. ACCUPRIL [Concomitant]
     Indication: BLOOD PRESSURE
  10. ASPIRIN [Concomitant]
     Indication: CORONARY ARTERIAL STENT INSERTION

REACTIONS (3)
  - JOINT SWELLING [None]
  - OEDEMA PERIPHERAL [None]
  - WEIGHT INCREASED [None]
